FAERS Safety Report 19934217 (Version 1)
Quarter: 2021Q4

REPORT INFORMATION
  Report Type: Spontaneous
  Country: FR (occurrence: FR)
  Receive Date: 20211008
  Receipt Date: 20211008
  Transmission Date: 20220303
  Serious: Yes (Disabling, Other)
  Sender: FDA-Public Use
  Company Number: None

PATIENT
  Age: 90 Year
  Sex: Female
  Weight: 42 kg

DRUGS (6)
  1. LOVENOX [Interacting]
     Active Substance: ENOXAPARIN SODIUM
     Indication: Thrombosis prophylaxis
     Dosage: 1 DF, QD
     Route: 048
     Dates: start: 2021, end: 20210429
  2. KARDEGIC [Interacting]
     Active Substance: ASPIRIN DL-LYSINE
     Indication: Myeloproliferative neoplasm
     Dosage: 1 DF, QD
     Route: 048
     Dates: start: 2021, end: 20210429
  3. DORZOLAMIDE HYDROCHLORIDE\TIMOLOL MALEATE [Concomitant]
     Active Substance: DORZOLAMIDE HYDROCHLORIDE\TIMOLOL MALEATE
     Dosage: UNK
     Route: 047
  4. MIRTAZAPINE [Concomitant]
     Active Substance: MIRTAZAPINE
     Dosage: UNK
     Route: 048
  5. LATANOPROST [Concomitant]
     Active Substance: LATANOPROST
     Dosage: UNK
     Route: 047
  6. VERCYTE [Concomitant]
     Active Substance: PIPOBROMAN
     Dosage: UNK
     Route: 048

REACTIONS (3)
  - Cauda equina syndrome [Recovered/Resolved with Sequelae]
  - Extradural haematoma [Recovered/Resolved with Sequelae]
  - Drug interaction [Unknown]

NARRATIVE: CASE EVENT DATE: 20210429
